FAERS Safety Report 4946348-3 (Version None)
Quarter: 2006Q1

REPORT INFORMATION
  Report Type: 
  Country: None (occurrence: None)
  Receive Date: 20060316
  Receipt Date: 20060316
  Transmission Date: 20060701
  Serious: Yes (Hospitalization)
  Sender: FDA-Public Use
  Company Number: None

PATIENT
  Age: 85 Year
  Sex: Male
  Weight: 46.2669 kg

DRUGS (4)
  1. CEFTAZIDIME SODIUM [Suspect]
     Indication: PROPHYLAXIS
     Dosage: 2 GM  Q8H IV
     Route: 042
     Dates: start: 20060306, end: 20060311
  2. CEFTAZIDIME SODIUM [Suspect]
     Indication: RESPIRATORY DISORDER
     Dosage: 2 GM  Q8H IV
     Route: 042
     Dates: start: 20060306, end: 20060311
  3. UNASYN [Suspect]
     Indication: CHOLANGITIS
     Dosage: 1.5 GM Q6H IV
     Route: 042
     Dates: start: 20060228, end: 20060305
  4. UNASYN [Suspect]
     Indication: CHOLECYSTITIS
     Dosage: 1.5 GM Q6H IV
     Route: 042
     Dates: start: 20060228, end: 20060305

REACTIONS (1)
  - DIARRHOEA [None]
